FAERS Safety Report 10431823 (Version 5)
Quarter: 2015Q1

REPORT INFORMATION
  Report Type: Spontaneous
  Country: JP (occurrence: JP)
  Receive Date: 20140905
  Receipt Date: 20150212
  Transmission Date: 20150720
  Serious: Yes (Death)
  Sender: FDA-Public Use
  Company Number: JP-ROCHE-1456789

PATIENT
  Age: 62 Year
  Sex: Female
  Weight: 41 kg

DRUGS (9)
  1. COPEGUS [Suspect]
     Active Substance: RIBAVIRIN
     Indication: CHRONIC HEPATITIS C
     Route: 048
     Dates: start: 20140619, end: 20140703
  2. CORTRIL [Concomitant]
     Active Substance: HYDROCORTISONE
     Indication: ADRENAL INSUFFICIENCY
     Route: 048
  3. SOVRIAD [Suspect]
     Active Substance: SIMEPREVIR
     Indication: CHRONIC HEPATITIS C
     Dosage: DOSAGE IS UNCERTAIN.
     Route: 048
     Dates: end: 201408
  4. RISEDRONATE SODIUM. [Concomitant]
     Active Substance: RISEDRONATE SODIUM
     Indication: OSTEOPOROSIS
     Route: 048
  5. COPEGUS [Suspect]
     Active Substance: RIBAVIRIN
     Indication: CHRONIC HEPATITIS C
     Route: 048
     Dates: start: 20140313, end: 20140618
  6. SOVRIAD [Suspect]
     Active Substance: SIMEPREVIR
     Route: 048
     Dates: start: 20140313, end: 20140605
  7. URSODEOXYCHOLIC ACID [Concomitant]
     Active Substance: URSODIOL
     Indication: LIVER DISORDER
     Route: 048
  8. PEGASYS [Suspect]
     Active Substance: PEGINTERFERON ALFA-2A
     Indication: CHRONIC HEPATITIS C
     Route: 058
     Dates: start: 20140313, end: 20140821
  9. COPEGUS [Suspect]
     Active Substance: RIBAVIRIN
     Indication: CHRONIC HEPATITIS C
     Route: 048
     Dates: start: 20140704, end: 20140821

REACTIONS (1)
  - Sudden death [Fatal]

NARRATIVE: CASE EVENT DATE: 20140827
